FAERS Safety Report 9149524 (Version 1)
Quarter: 2013Q1

REPORT INFORMATION
  Report Type: Spontaneous
  Country: GB (occurrence: GB)
  Receive Date: 20130308
  Receipt Date: 20130308
  Transmission Date: 20140127
  Serious: Yes (Disabling)
  Sender: FDA-Public Use
  Company Number: PHHY2013GB021146

PATIENT
  Age: 59 Year
  Sex: Female
  Weight: 76.2 kg

DRUGS (13)
  1. LOSARTAN [Suspect]
  2. TRAMADOL [Concomitant]
     Dates: start: 20121108
  3. OMEPRAZOLE [Concomitant]
     Dates: start: 20121108
  4. AMITRIPTYLINE HYDROCHLORIDE [Concomitant]
     Dates: start: 20121108
  5. IBUPROFEN [Concomitant]
     Dates: start: 20121116, end: 20121214
  6. SIMVASTATIN [Concomitant]
     Dates: start: 20121211
  7. RAMIPRIL [Concomitant]
     Dates: start: 20121211
  8. TEMAZEPAM [Concomitant]
     Dates: start: 20121211, end: 20130108
  9. TICAGRELOR [Concomitant]
     Dates: start: 20121211
  10. ASPIRIN [Concomitant]
     Dates: start: 20121211
  11. BISOPROLOL [Concomitant]
     Dates: start: 20121211
  12. PARACETAMOL [Concomitant]
     Dates: start: 20121211
  13. GLYCERYL TRINITRATE [Concomitant]
     Dates: start: 20130131

REACTIONS (2)
  - Sneezing [Not Recovered/Not Resolved]
  - Cough [Unknown]
